FAERS Safety Report 14333472 (Version 3)
Quarter: 2018Q1

REPORT INFORMATION
  Report Type: Spontaneous
  Country: US (occurrence: US)
  Receive Date: 20171228
  Receipt Date: 20180213
  Transmission Date: 20180509
  Serious: Yes (Hospitalization)
  Sender: FDA-Public Use
  Company Number: US-PFIZER INC-2017545706

PATIENT
  Age: 67 Year
  Sex: Female

DRUGS (1)
  1. XELJANZ XR [Suspect]
     Active Substance: TOFACITINIB CITRATE
     Dosage: 11 MG, UNK
     Dates: start: 201709

REACTIONS (6)
  - Bacterial infection [Unknown]
  - Ingrown hair [Unknown]
  - Pyrexia [Unknown]
  - Decreased appetite [Unknown]
  - Hypersensitivity [Unknown]
  - Rhinorrhoea [Unknown]
